FAERS Safety Report 6407307-7 (Version None)
Quarter: 2009Q4

REPORT INFORMATION
  Report Type: 
  Country: None (occurrence: None)
  Receive Date: 20091020
  Receipt Date: 20091015
  Transmission Date: 20100525
  Serious: Yes (Hospitalization)
  Sender: FDA-Public Use
  Company Number: A0812419A

PATIENT
  Age: 55 Year
  Sex: Female

DRUGS (4)
  1. TYKERB [Suspect]
     Dosage: 250MG UNKNOWN
     Route: 065
     Dates: start: 20090331, end: 20090930
  2. CAPECITABINE [Suspect]
     Route: 065
     Dates: start: 20080716
  3. LETROZOLE [Suspect]
     Route: 065
     Dates: start: 20090527, end: 20090930
  4. DOCETAXEL [Suspect]
     Route: 065
     Dates: start: 20090331

REACTIONS (2)
  - EPISTAXIS [None]
  - LIVER INJURY [None]
